FAERS Safety Report 5290868-1 (Version None)
Quarter: 2007Q2

REPORT INFORMATION
  Report Type: 
  Country: None (occurrence: None)
  Receive Date: 20070409
  Receipt Date: 20070326
  Transmission Date: 20071010
  Serious: Yes (Hospitalization)
  Sender: FDA-Public Use
  Company Number: US-PFIZER INC-2007023905

PATIENT
  Age: 82 Year
  Sex: Female
  Weight: 59.4 kg

DRUGS (9)
  1. LYRICA [Suspect]
     Indication: NEUROPATHY PERIPHERAL
     Route: 048
  2. OXYCODONE HCL [Suspect]
     Indication: NEUROPATHY PERIPHERAL
     Route: 048
  3. DIGOXIN [Concomitant]
  4. PRILOSEC [Concomitant]
  5. DYAZIDE [Concomitant]
  6. ELAVIL [Concomitant]
  7. METOPROLOL SUCCINATE [Concomitant]
  8. OXYCONTIN [Concomitant]
  9. ALL OTHER THERAPEUTIC PRODUCTS [Concomitant]

REACTIONS (1)
  - DEPRESSED LEVEL OF CONSCIOUSNESS [None]
